FAERS Safety Report 5004367-5 (Version None)
Quarter: 2006Q2

REPORT INFORMATION
  Report Type: 
  Country: None (occurrence: None)
  Receive Date: 20060517
  Receipt Date: 20060508
  Transmission Date: 20061013
  Serious: Yes (Hospitalization)
  Sender: FDA-Public Use
  Company Number: NL-GLAXOSMITHKLINE-B0423953A

PATIENT
  Sex: Female

DRUGS (3)
  1. AMOXICILLIN TRIHYDRATE + POTASSIUM CLAVULANATE [Suspect]
     Indication: PHARYNGOLARYNGEAL PAIN
     Dates: start: 20060316
  2. METRONIDAZOLE [Concomitant]
  3. TRAMADOL HCL [Concomitant]
     Dosage: 100MG PER DAY

REACTIONS (6)
  - ABDOMINAL PAIN [None]
  - DIARRHOEA HAEMORRHAGIC [None]
  - ENTEROCOLITIS HAEMORRHAGIC [None]
  - GASTROENTERITIS VIRAL [None]
  - HAEMORRHAGE [None]
  - VOMITING [None]
